FAERS Safety Report 13822716 (Version 1)
Quarter: 2017Q3

REPORT INFORMATION
  Report Type: Spontaneous
  Country: CN (occurrence: CN)
  Receive Date: 20170801
  Receipt Date: 20170801
  Transmission Date: 20171127
  Serious: Yes (Death, Life-Threatening, Other)
  Sender: FDA-Public Use
  Company Number: CN-ASTRAZENECA-2017SE76995

PATIENT
  Age: 5 Month
  Sex: Male

DRUGS (4)
  1. IPRATROPIUM BROMIDE. [Concomitant]
     Active Substance: IPRATROPIUM BROMIDE
     Dosage: SOLUTION FOR INHALATION
  2. PULMICORT RESPULES [Suspect]
     Active Substance: BUDESONIDE
     Indication: PROPHYLAXIS
     Dosage: BUDESONIDE SUSPENSION FOR INHALATION,1MG EVERY TIME VIA NEBULIZATION FOR PAEDIATRIC INHALATION BID
     Route: 055
  3. AMBROXOL HYDROCHLORIDE [Concomitant]
     Active Substance: AMBROXOL HYDROCHLORIDE
  4. PULMICORT RESPULES [Suspect]
     Active Substance: BUDESONIDE
     Indication: PROPHYLAXIS
     Route: 055

REACTIONS (8)
  - Nephroblastoma [Fatal]
  - Glomerulonephritis [Fatal]
  - Systemic infection [Unknown]
  - Circulatory collapse [Fatal]
  - Bronchospasm [Unknown]
  - Laryngospasm [Unknown]
  - Idiopathic interstitial pneumonia [Fatal]
  - Acute respiratory failure [Fatal]
